FAERS Safety Report 4944139-0 (Version None)
Quarter: 2006Q1

REPORT INFORMATION
  Report Type: 
  Country: None (occurrence: None)
  Receive Date: 20060310
  Receipt Date: 20060301
  Transmission Date: 20060701
  Serious: Yes (Other)
  Sender: FDA-Public Use
  Company Number: 13572

PATIENT
  Age: 81 Year
  Sex: Male

DRUGS (1)
  1. AMIODARONE HCL [Suspect]

REACTIONS (6)
  - BONE MARROW DISORDER [None]
  - GRANULOMA [None]
  - HEPATOSPLENOMEGALY [None]
  - HYPERTHYROIDISM [None]
  - PLATELET COUNT DECREASED [None]
  - WHITE BLOOD CELL COUNT DECREASED [None]
